FAERS Safety Report 5159500-1 (Version None)
Quarter: 2006Q4

REPORT INFORMATION
  Report Type: 
  Country: None (occurrence: None)
  Receive Date: 20061129
  Receipt Date: 20061120
  Transmission Date: 20070319
  Serious: Yes (Other)
  Sender: FDA-Public Use
  Company Number: GR-JNJFOC-20061104606

PATIENT
  Age: 54 Year
  Sex: Female

DRUGS (7)
  1. REMICADE [Suspect]
     Route: 042
  2. REMICADE [Suspect]
     Indication: CROHN'S DISEASE
     Route: 042
  3. PREZOLON [Concomitant]
     Indication: CROHN'S DISEASE
     Route: 048
  4. AZATHIOPRINE [Concomitant]
     Indication: CROHN'S DISEASE
     Route: 048
  5. LOSEC [Concomitant]
     Indication: CROHN'S DISEASE
     Route: 048
  6. IDEOS [Concomitant]
     Indication: OSTEOPOROSIS
     Route: 048
  7. FOSAMAX [Concomitant]
     Indication: OSTEOPOROSIS
     Route: 048

REACTIONS (8)
  - ABDOMINAL PAIN UPPER [None]
  - COUGH [None]
  - DIARRHOEA [None]
  - DYSPHONIA [None]
  - DYSPHORIA [None]
  - ERYTHEMA [None]
  - INFUSION RELATED REACTION [None]
  - TACHYCARDIA [None]
